FAERS Safety Report 14774265 (Version 2)
Quarter: 2018Q2

REPORT INFORMATION
  Report Type: Spontaneous
  Country: JP (occurrence: JP)
  Receive Date: 20180418
  Receipt Date: 20180507
  Transmission Date: 20180711
  Serious: Yes (Death)
  Sender: FDA-Public Use
  Company Number: JP-ELI_LILLY_AND_COMPANY-JP201804007621

PATIENT
  Age: 56 Year
  Sex: Male

DRUGS (4)
  1. ABILIFY [Suspect]
     Active Substance: ARIPIPRAZOLE
     Indication: BIPOLAR DISORDER
     Route: 065
  2. TRAMCET [Suspect]
     Active Substance: ACETAMINOPHEN\TRAMADOL
     Indication: POLYNEUROPATHY IN MALIGNANT DISEASE
     Route: 065
  3. DULOXETINE HYDROCHLORIDE. [Suspect]
     Active Substance: DULOXETINE HYDROCHLORIDE
     Indication: POLYNEUROPATHY IN MALIGNANT DISEASE
     Dosage: 40 MG, DAILY
     Route: 048
  4. NOVAMIN                            /00013301/ [Suspect]
     Active Substance: PROCHLORPERAZINE
     Indication: PROPHYLAXIS OF NAUSEA AND VOMITING
     Route: 065

REACTIONS (5)
  - Serotonin syndrome [Fatal]
  - Parkinsonism [Fatal]
  - Aspiration [Fatal]
  - Intestinal obstruction [Fatal]
  - Off label use [Unknown]
